FAERS Safety Report 25677385 (Version 2)
Quarter: 2025Q3

REPORT INFORMATION
  Report Type: Spontaneous
  Country: US (occurrence: US)
  Receive Date: 20250813
  Receipt Date: 20250905
  Transmission Date: 20251020
  Serious: No
  Sender: ABBVIE
  Company Number: US-ABBVIE-6401255

PATIENT
  Age: 66 Year
  Sex: Female

DRUGS (1)
  1. REFRESH TEARS PF [Suspect]
     Active Substance: CARBOXYMETHYLCELLULOSE SODIUM\GLYCERIN
     Indication: Product used for unknown indication
     Route: 047
     Dates: start: 202506

REACTIONS (3)
  - Poor quality product administered [Not Recovered/Not Resolved]
  - Product container issue [Not Recovered/Not Resolved]
  - Product contamination microbial [Not Recovered/Not Resolved]

NARRATIVE: CASE EVENT DATE: 20250715
